FAERS Safety Report 5285806-1 (Version None)
Quarter: 2007Q1

REPORT INFORMATION
  Report Type: 
  Country: None (occurrence: None)
  Receive Date: 20070116
  Receipt Date: 20061015
  Transmission Date: 20070707
  Serious: No
  Sender: FDA-Public Use
  Company Number: 2006SP003682

PATIENT
  Age: 69 Year
  Sex: Male

DRUGS (5)
  1. LUNESTA [Suspect]
     Indication: SLEEP DISORDER
     Dosage: 3 MG;QD;ORAL
     Route: 048
     Dates: start: 20061013, end: 20061018
  2. HYDROCHLOROTHIAZIDE [Concomitant]
  3. NADOLOL [Concomitant]
  4. ALTACE [Concomitant]
  5. VYTORIN [Concomitant]

REACTIONS (1)
  - DYSGEUSIA [None]
